FAERS Safety Report 6213813-0 (Version None)
Quarter: 2009Q2

REPORT INFORMATION
  Report Type: 
  Country: None (occurrence: None)
  Receive Date: 20090602
  Receipt Date: 20090528
  Transmission Date: 20091009
  Serious: Yes (Hospitalization)
  Sender: FDA-Public Use
  Company Number: SP02400

PATIENT
  Age: 63 Year
  Sex: Male
  Weight: 62.5964 kg

DRUGS (6)
  1. OSMOPREP [Suspect]
     Indication: COLONOSCOPY
     Dosage: (32 TABLETS SPLIT DOSE REGIMEN),ORAL
     Route: 048
     Dates: start: 20090521, end: 20090522
  2. MULTI-VITAMIN [Concomitant]
  3. MIRTAZAPINE [Concomitant]
  4. LEVOTHYROXINE [Concomitant]
  5. METFORMIN [Concomitant]
  6. ASPIRIN [Concomitant]

REACTIONS (9)
  - AMNESIA [None]
  - ASTHENIA [None]
  - CONVULSION [None]
  - FALL [None]
  - FEELING ABNORMAL [None]
  - GAIT DISTURBANCE [None]
  - HEAD INJURY [None]
  - HYPONATRAEMIA [None]
  - INSOMNIA [None]
